FAERS Safety Report 9930715 (Version 2)
Quarter: 2014Q2

REPORT INFORMATION
  Report Type: Spontaneous
  Country: US (occurrence: US)
  Receive Date: 20140227
  Receipt Date: 20140513
  Transmission Date: 20141212
  Serious: Yes (Hospitalization, Other)
  Sender: FDA-Public Use
  Company Number: US-GILEAD-2014-0095740

PATIENT
  Sex: Female

DRUGS (2)
  1. LETAIRIS [Suspect]
     Indication: PULMONARY HYPERTENSION
     Route: 048
     Dates: start: 201310
  2. LETAIRIS [Suspect]
     Indication: PULMONARY VENO-OCCLUSIVE DISEASE

REACTIONS (1)
  - Pulmonary veno-occlusive disease [Unknown]
